FAERS Safety Report 13558533 (Version 1)
Quarter: 2017Q2

REPORT INFORMATION
  Report Type: Spontaneous
  Country: US (occurrence: US)
  Receive Date: 20170518
  Receipt Date: 20170518
  Transmission Date: 20170830
  Serious: Yes (Other)
  Sender: FDA-Public Use
  Company Number: None

PATIENT
  Age: 35 Year
  Sex: Female
  Weight: 76.5 kg

DRUGS (1)
  1. IC BUPRENORPHIN-NALOXON [Suspect]
     Active Substance: BUPRENORPHINE\NALOXONE
     Indication: DRUG USE DISORDER
     Dosage: ?          QUANTITY:2 TABLET(S);?
     Route: 060
     Dates: start: 20170516, end: 20170518

REACTIONS (7)
  - Product substitution issue [None]
  - Drug ineffective [None]
  - Diarrhoea [None]
  - Insomnia [None]
  - Pain [None]
  - Drug withdrawal syndrome [None]
  - Vomiting [None]

NARRATIVE: CASE EVENT DATE: 20170516
